FAERS Safety Report 6032370-5 (Version None)
Quarter: 2009Q1

REPORT INFORMATION
  Report Type: 
  Country: None (occurrence: None)
  Receive Date: 20090109
  Receipt Date: 20081231
  Transmission Date: 20090719
  Serious: Yes (Other)
  Sender: FDA-Public Use
  Company Number: DE-PFIZER INC-2009150165

PATIENT

DRUGS (2)
  1. GENOTROPIN [Suspect]
     Indication: GROWTH HORMONE DEFICIENCY
     Dosage: UNK
     Route: 058
     Dates: start: 19970101, end: 19990101
  2. GENOTROPIN [Suspect]
     Indication: BODY HEIGHT BELOW NORMAL

REACTIONS (2)
  - COELIAC DISEASE [None]
  - COLONIC POLYP [None]
